FAERS Safety Report 8259071-7 (Version None)
Quarter: 2012Q2

REPORT INFORMATION
  Report Type: 
  Country: None (occurrence: None)
  Receive Date: 20120404
  Receipt Date: 20120320
  Transmission Date: 20120825
  Serious: Yes (Hospitalization)
  Sender: FDA-Public Use
  Company Number: DE-ROCHE-1056271

PATIENT
  Sex: Female
  Weight: 49 kg

DRUGS (5)
  1. FLUOROURACIL [Suspect]
     Indication: COLON CANCER
     Dosage: LAST DOSE PRIOR TO SAE 05/MAR/2012, LAST ADMINISTERED DOSE: 3200 MG
     Route: 042
     Dates: start: 20120104
  2. AVASTIN [Suspect]
     Indication: COLON CANCER
     Dosage: LAST DOSE PRIOR TO SAE 05/MAR/2012, LAST DOSE ADMINISTERED 50 MG/KG
     Route: 042
     Dates: start: 20120104
  3. OXALIPLATIN [Suspect]
     Indication: COLON CANCER
     Dosage: LAST DOSE PRIOR TO SAE 05/MAR/2012, LAST DOSE ADMINISTERED 85 MG/M2
     Route: 042
     Dates: start: 20120104
  4. LEUCOVORIN CALCIUM [Suspect]
     Indication: COLON CANCER
     Dosage: LAST DOSE PRIOR TO SAE 05/MAR/2012, LAST ADMINISTERED DOSE: 200 MG/M2
     Dates: start: 20120104
  5. IRINOTECAN HYDROCHLORIDE [Suspect]
     Indication: COLON CANCER
     Dosage: LAST DOSE PRIOR TO SAE 05/MAR/2012, LAST ADMINISTERED DOSE: 165 MG/M2
     Route: 042
     Dates: start: 20120104

REACTIONS (1)
  - CHOLECYSTITIS ACUTE [None]
